FAERS Safety Report 11441999 (Version 3)
Quarter: 2015Q3

REPORT INFORMATION
  Report Type: Spontaneous
  Country: JP (occurrence: JP)
  Receive Date: 20150901
  Receipt Date: 20150903
  Transmission Date: 20151125
  Serious: Yes (Death, Hospitalization)
  Sender: FDA-Public Use
  Company Number: JP-BAYER-2015-403068

PATIENT
  Age: 71 Year
  Sex: Female

DRUGS (1)
  1. BAYASPIRIN [Suspect]
     Active Substance: ASPIRIN
     Indication: MYOCARDIAL ISCHAEMIA
     Dosage: UNK DF, UNK

REACTIONS (7)
  - Disseminated intravascular coagulation [Fatal]
  - Melaena [None]
  - Haemorrhagic anaemia [None]
  - Sepsis [Fatal]
  - Cholecystitis acute [None]
  - Extravasation blood [None]
  - Myocardial ischaemia [None]
